FAERS Safety Report 7249162-1 (Version None)
Quarter: 2011Q1

REPORT INFORMATION
  Report Type: 
  Country: None (occurrence: None)
  Receive Date: 20110128
  Receipt Date: 20100707
  Transmission Date: 20110831
  Serious: Yes (Hospitalization, Other)
  Sender: FDA-Public Use
  Company Number: US-BAYER-200932946NA

PATIENT
  Sex: Female
  Weight: 57 kg

DRUGS (3)
  1. YASMIN [Suspect]
     Indication: PRODUCT USED FOR UNKNOWN INDICATION
     Dates: start: 20070201, end: 20070831
  2. MOTRIN [Concomitant]
  3. YASMIN [Suspect]
     Dates: start: 20040301, end: 20040301

REACTIONS (12)
  - MIGRAINE WITH AURA [None]
  - INJURY [None]
  - BURNING SENSATION [None]
  - PULMONARY EMBOLISM [None]
  - PANIC ATTACK [None]
  - FEELING HOT [None]
  - VISION BLURRED [None]
  - ANXIETY [None]
  - SINUSITIS [None]
  - DYSPNOEA [None]
  - CHEST PAIN [None]
  - PULMONARY INFARCTION [None]
